FAERS Safety Report 7082588-8 (Version None)
Quarter: 2010Q4

REPORT INFORMATION
  Report Type: 
  Country: None (occurrence: None)
  Receive Date: 20101104
  Receipt Date: 20101025
  Transmission Date: 20110411
  Serious: Yes (Other)
  Sender: FDA-Public Use
  Company Number: US-JNJFOC-20100906669

PATIENT
  Sex: Female
  Weight: 74.84 kg

DRUGS (4)
  1. REMICADE [Suspect]
     Indication: CROHN'S DISEASE
     Route: 042
  2. PREDNISONE [Concomitant]
  3. IMURAN [Concomitant]
  4. PENTASA [Concomitant]

REACTIONS (1)
  - COCCIDIOIDOMYCOSIS [None]
